FAERS Safety Report 20092054 (Version 1)
Quarter: 2021Q4

REPORT INFORMATION
  Report Type: Spontaneous
  Country: FR (occurrence: FR)
  Receive Date: 20211119
  Receipt Date: 20211119
  Transmission Date: 20220303
  Serious: Yes (Hospitalization, Congenital Anomaly, Other)
  Sender: FDA-Public Use
  Company Number: FR-ABBVIE-21K-056-4163830-00

PATIENT
  Sex: Male

DRUGS (1)
  1. VALPROATE SODIUM [Suspect]
     Active Substance: VALPROATE SODIUM
     Indication: Maternal exposure timing unspecified
     Route: 064

REACTIONS (53)
  - Dysmorphism [Unknown]
  - Strabismus [Unknown]
  - Hypotonia [Unknown]
  - Hypoglycaemia [Unknown]
  - Hypoxia [Unknown]
  - Middle insomnia [Unknown]
  - Adenoidectomy [Unknown]
  - Language disorder [Unknown]
  - Tonsillectomy [Unknown]
  - Talipes [Recovering/Resolving]
  - Memory impairment [Unknown]
  - Penile adhesion [Unknown]
  - Selective eating disorder [Unknown]
  - Dysgraphia [Unknown]
  - Speech disorder developmental [Unknown]
  - Behaviour disorder [Unknown]
  - Fine motor skill dysfunction [Unknown]
  - Loss of proprioception [Unknown]
  - Dacryostenosis acquired [Unknown]
  - Hypoacusis [Unknown]
  - Sleep terror [Recovering/Resolving]
  - Visual acuity reduced [Unknown]
  - Myopia [Unknown]
  - Middle insomnia [Unknown]
  - Sleep disorder [Recovering/Resolving]
  - Astigmatism [Unknown]
  - Appendiceal abscess [Unknown]
  - Retinal vascular occlusion [Unknown]
  - Nightmare [Recovering/Resolving]
  - Haemangioma of skin [Unknown]
  - Tonsillitis [Unknown]
  - Otitis media chronic [Unknown]
  - Haemangioma of skin [Recovering/Resolving]
  - Psychiatric symptom [Unknown]
  - Affective disorder [Unknown]
  - Dysgraphia [Unknown]
  - Speech sound disorder [Unknown]
  - Ear, nose and throat disorder [Unknown]
  - Dysgraphia [Unknown]
  - Gait disturbance [Unknown]
  - Speech disorder [Unknown]
  - Cognitive disorder [Unknown]
  - Muscle tone disorder [Recovering/Resolving]
  - Disturbance in attention [Unknown]
  - Amblyopia [Unknown]
  - Conjunctivitis [Unknown]
  - Anxiety [Unknown]
  - Learning disorder [Unknown]
  - Epilepsy [Unknown]
  - Gastroenteritis [Unknown]
  - Pneumonia [Unknown]
  - Premature baby [Unknown]
  - Foetal exposure during pregnancy [Unknown]

NARRATIVE: CASE EVENT DATE: 20050401
